FAERS Safety Report 9050386 (Version 1)
Quarter: 2013Q1

REPORT INFORMATION
  Report Type: Spontaneous
  Country: PL (occurrence: PL)
  Receive Date: 20130205
  Receipt Date: 20130205
  Transmission Date: 20140127
  Serious: Yes (Other)
  Sender: FDA-Public Use
  Company Number: PL-BRISTOL-MYERS SQUIBB COMPANY-17318478

PATIENT
  Age: 55 Year
  Sex: Female

DRUGS (4)
  1. ATAZANAVIR [Suspect]
     Indication: ANTIRETROVIRAL THERAPY
     Dates: start: 20110608
  2. SUSTIVA [Suspect]
  3. TENOFOVIR DF + EMTRICITABINE [Suspect]
     Dates: start: 20110608
  4. RITONAVIR [Suspect]
     Dates: start: 20110608

REACTIONS (5)
  - Cognitive disorder [Unknown]
  - Depression [Unknown]
  - Drug resistance [Unknown]
  - Body mass index increased [Unknown]
  - Pruritus [Unknown]
